FAERS Safety Report 26071968 (Version 1)
Quarter: 2025Q4

REPORT INFORMATION
  Report Type: Spontaneous
  Country: US (occurrence: US)
  Receive Date: 20251120
  Receipt Date: 20251120
  Transmission Date: 20260118
  Serious: Yes (Other)
  Sender: PFIZER
  Company Number: US-PFIZER INC-PV202500135230

PATIENT
  Age: 55 Year
  Sex: Female

DRUGS (12)
  1. RIFABUTIN [Suspect]
     Active Substance: RIFABUTIN
     Indication: Lower respiratory tract infection bacterial
     Dosage: 300 MG, DAILY
     Dates: start: 20250422
  2. RIFABUTIN [Suspect]
     Active Substance: RIFABUTIN
     Indication: Lung disorder
  3. RIFABUTIN [Suspect]
     Active Substance: RIFABUTIN
     Indication: Bronchiectasis
  4. AZITHROMYCIN [Suspect]
     Active Substance: AZITHROMYCIN
     Indication: Lower respiratory tract infection bacterial
     Dosage: 500 MG, DAILY
     Dates: start: 20250422
  5. AZITHROMYCIN [Suspect]
     Active Substance: AZITHROMYCIN
     Indication: Lung disorder
  6. AZITHROMYCIN [Suspect]
     Active Substance: AZITHROMYCIN
     Indication: Bronchiectasis
  7. ETHAMBUTOL [Suspect]
     Active Substance: ETHAMBUTOL HYDROCHLORIDE
     Indication: Lower respiratory tract infection bacterial
     Dosage: 1000 MG, DAILY
     Dates: start: 20250422
  8. ETHAMBUTOL [Suspect]
     Active Substance: ETHAMBUTOL HYDROCHLORIDE
     Indication: Lung disorder
  9. ETHAMBUTOL [Suspect]
     Active Substance: ETHAMBUTOL HYDROCHLORIDE
     Indication: Bronchiectasis
  10. CLOFAZIMINE [Concomitant]
     Active Substance: CLOFAZIMINE
     Indication: Lung disorder
     Dosage: UNK, RECOMMENDED AS 4TH DRUG
  11. CLOFAZIMINE [Concomitant]
     Active Substance: CLOFAZIMINE
     Indication: Bronchiectasis
  12. CLOFAZIMINE [Concomitant]
     Active Substance: CLOFAZIMINE
     Indication: Lower respiratory tract infection bacterial

REACTIONS (1)
  - Condition aggravated [Not Recovered/Not Resolved]

NARRATIVE: CASE EVENT DATE: 20250101
